FAERS Safety Report 10218377 (Version 1)
Quarter: 2014Q2

REPORT INFORMATION
  Report Type: Spontaneous
  Country: ES (occurrence: ES)
  Receive Date: 20140605
  Receipt Date: 20140605
  Transmission Date: 20141212
  Serious: Yes (Death)
  Sender: FDA-Public Use
  Company Number: ES-BAYER-2014-077955

PATIENT
  Age: 87 Year
  Sex: Female

DRUGS (7)
  1. ADIRO 100 [Suspect]
     Indication: MYOCARDIAL ISCHAEMIA
     Dosage: 100 MG, QD
     Route: 048
     Dates: start: 20130610, end: 20130630
  2. SINTROM [Interacting]
     Indication: ATRIAL FIBRILLATION
     Route: 048
     Dates: start: 2007, end: 20130630
  3. ESCITALOPRAM [Interacting]
     Indication: DEPRESSION
     Dosage: 20 MG, QD
     Route: 048
     Dates: start: 20130610, end: 20130630
  4. TRANGOREX [Interacting]
     Indication: ATRIAL FIBRILLATION
     Route: 048
     Dates: start: 20130124, end: 20130630
  5. ATENOLOL [Concomitant]
     Indication: CARDIAC FAILURE CONGESTIVE
     Dosage: 37.5 MG, BID
     Route: 048
     Dates: start: 20130610, end: 20130630
  6. LANTUS [Concomitant]
     Indication: TYPE 2 DIABETES MELLITUS
     Dosage: 10 IU, QD
     Route: 058
     Dates: start: 2011, end: 20130630
  7. SEGURIL [Concomitant]
     Indication: CARDIAC FAILURE CONGESTIVE
     Dosage: 20 MG, BID
     Route: 048
     Dates: start: 20130610, end: 20130630

REACTIONS (1)
  - Cerebral haemorrhage [Fatal]
